FAERS Safety Report 12311623 (Version 1)
Quarter: 2016Q2

REPORT INFORMATION
  Report Type: Spontaneous
  Country: US (occurrence: US)
  Receive Date: 20160427
  Receipt Date: 20160427
  Transmission Date: 20160815
  Serious: Yes (Other)
  Sender: FDA-Public Use
  Company Number: US-BAYER-2016-081106

PATIENT
  Age: 42 Year
  Sex: Female

DRUGS (1)
  1. MIRENA [Suspect]
     Active Substance: LEVONORGESTREL
     Indication: CONTRACEPTION
     Dosage: 20 MCG/24HR, CONT
     Route: 015
     Dates: end: 20160412

REACTIONS (5)
  - Polymenorrhoea [None]
  - Fear of disease [Not Recovered/Not Resolved]
  - Coital bleeding [Not Recovered/Not Resolved]
  - Metrorrhagia [None]
  - Genital haemorrhage [Not Recovered/Not Resolved]
